FAERS Safety Report 8337232-6 (Version None)
Quarter: 2012Q2

REPORT INFORMATION
  Report Type: 
  Country: None (occurrence: None)
  Receive Date: 20120504
  Receipt Date: 20120425
  Transmission Date: 20120825
  Serious: Yes (Hospitalization)
  Sender: FDA-Public Use
  Company Number: RO-NOVOPROD-350368

PATIENT
  Age: 55 Year
  Sex: Female
  Weight: 56.6 kg

DRUGS (1)
  1. LIRAGLUTIDE FLEXPEN [Suspect]
     Indication: TYPE 2 DIABETES MELLITUS
     Dosage: 1.2 MG, QD
     Route: 058
     Dates: start: 20110803, end: 20120314

REACTIONS (1)
  - RECTOSIGMOID CANCER METASTATIC [None]
